FAERS Safety Report 7919802-X (Version None)
Quarter: 2011Q4

REPORT INFORMATION
  Report Type: 
  Country: None (occurrence: None)
  Receive Date: 20111117
  Receipt Date: 20111110
  Transmission Date: 20120403
  Serious: Yes (Other)
  Sender: FDA-Public Use
  Company Number: US-JNJFOC-20111106064

PATIENT
  Age: 4 Year
  Sex: Male

DRUGS (2)
  1. CHILDREN'S SUDAFED PE COLD + COUGH LIQUID [Suspect]
     Indication: PYREXIA
     Route: 048
  2. CHILDREN'S SUDAFED PE COLD + COUGH LIQUID [Suspect]
     Indication: COUGH
     Route: 048

REACTIONS (2)
  - HALLUCINATION, VISUAL [None]
  - OFF LABEL USE [None]
